FAERS Safety Report 4963876-5 (Version None)
Quarter: 2006Q1

REPORT INFORMATION
  Report Type: 
  Country: None (occurrence: None)
  Receive Date: 20060201
  Receipt Date: 20051118
  Transmission Date: 20060701
  Serious: No
  Sender: FDA-Public Use
  Company Number: 2005PV004606

PATIENT
  Age: 57 Year
  Sex: Female
  Weight: 89.8122 kg

DRUGS (3)
  1. BYETTA [Suspect]
     Indication: DIABETES MELLITUS NON-INSULIN-DEPENDENT
     Dosage: 5 MCG;BID;SC
     Route: 058
     Dates: start: 20051109
  2. LEXAPRO [Concomitant]
  3. CRESTOR [Concomitant]

REACTIONS (5)
  - INJECTION SITE BRUISING [None]
  - INJECTION SITE ERYTHEMA [None]
  - INJECTION SITE EXTRAVASATION [None]
  - INJECTION SITE PRURITUS [None]
  - INJECTION SITE RASH [None]
